FAERS Safety Report 12114624 (Version 2)
Quarter: 2017Q2

REPORT INFORMATION
  Report Type: Spontaneous
  Country: RO (occurrence: RO)
  Receive Date: 20160225
  Receipt Date: 20170428
  Transmission Date: 20170829
  Serious: Yes (Other)
  Sender: FDA-Public Use
  Company Number: RO-PFIZER INC-2016100208

PATIENT
  Age: 62 Year
  Sex: Male

DRUGS (2)
  1. TEMSIROLIMUS [Suspect]
     Active Substance: TEMSIROLIMUS
     Indication: PAPILLARY RENAL CELL CARCINOMA
     Dosage: 25 MG, WEEKLY, INTRAVENOUS/ 30 MINUTES
     Route: 042
     Dates: start: 20111129, end: 20120905
  2. TEMSIROLIMUS [Suspect]
     Active Substance: TEMSIROLIMUS
     Dosage: UNK, WEEKLY
     Dates: start: 20150901, end: 20160301

REACTIONS (2)
  - Hepatitis B reactivation [Unknown]
  - Hepatotoxicity [Unknown]

NARRATIVE: CASE EVENT DATE: 2012
